FAERS Safety Report 19122394 (Version 1)
Quarter: 2021Q2

REPORT INFORMATION
  Report Type: Spontaneous
  Country: US (occurrence: US)
  Receive Date: 20210412
  Receipt Date: 20210412
  Transmission Date: 20210717
  Serious: No
  Sender: FDA-Public Use
  Company Number: US-SA-2021SA108443

PATIENT
  Age: 69 Year
  Sex: Male

DRUGS (1)
  1. LANTUS SOLOSTAR [Suspect]
     Active Substance: INSULIN GLARGINE
     Dosage: 48 UNITS AM AND 42 UNITS PM
     Route: 065
     Dates: start: 20200612

REACTIONS (3)
  - Dyspnoea [Unknown]
  - Visual impairment [Unknown]
  - Inappropriate schedule of product administration [Unknown]
